FAERS Safety Report 5655400-9 (Version None)
Quarter: 2008Q1

REPORT INFORMATION
  Report Type: 
  Country: None (occurrence: None)
  Receive Date: 20080307
  Receipt Date: 20080304
  Transmission Date: 20080703
  Serious: Yes (Life-Threatening, Hospitalization, Other)
  Sender: FDA-Public Use
  Company Number: US-MERCK-0803USA00664

PATIENT
  Sex: Female

DRUGS (1)
  1. JANUMET [Suspect]
     Route: 048

REACTIONS (1)
  - BLOOD CREATININE INCREASED [None]
